FAERS Safety Report 6714053-9 (Version None)
Quarter: 2010Q2

REPORT INFORMATION
  Report Type: 
  Country: None (occurrence: None)
  Receive Date: 20100503
  Receipt Date: 20100422
  Transmission Date: 20101027
  Serious: Yes (Hospitalization)
  Sender: FDA-Public Use
  Company Number: 2010S1000262-002

PATIENT
  Age: 35 Year
  Sex: Male

DRUGS (9)
  1. PITAVASTATIN CALCIUM [Suspect]
     Indication: HYPERLIPIDAEMIA
     Dosage: 1MG PO
     Route: 048
     Dates: start: 20090129, end: 20100302
  2. THIAMAZOLE [Concomitant]
  3. POTASSIUM GLUCONATE TAB [Concomitant]
  4. GLUCOSAMINE [Concomitant]
  5. MECOBALAMIN [Concomitant]
  6. ACETYLSALICYLIC ACID [Concomitant]
  7. TRIAZOLAM [Concomitant]
  8. FLUNITRAZEPAM [Concomitant]
  9. FURSULTIAMINE [Concomitant]

REACTIONS (5)
  - ALANINE AMINOTRANSFERASE INCREASED [None]
  - ASPARTATE AMINOTRANSFERASE INCREASED [None]
  - BLOOD ALKALINE PHOSPHATASE INCREASED [None]
  - GAIT DISTURBANCE [None]
  - RHABDOMYOLYSIS [None]
